FAERS Safety Report 21350535 (Version 1)
Quarter: 2022Q3

REPORT INFORMATION
  Report Type: Spontaneous
  Country: US (occurrence: US)
  Receive Date: 20220919
  Receipt Date: 20220919
  Transmission Date: 20221027
  Serious: No
  Sender: FDA-Public Use
  Company Number: US-drreddys-SPO/USA/22/0154590

PATIENT
  Age: 18 Year
  Sex: Female

DRUGS (1)
  1. ZENATANE [Suspect]
     Active Substance: ISOTRETINOIN
     Indication: Acne
     Dosage: RMA ISSUE DATE?04 AUGUST 2022 11:07:48 AM, 13 JUNE 2022 12:31:23 PM

REACTIONS (1)
  - Treatment noncompliance [Unknown]
